FAERS Safety Report 8029746-3 (Version None)
Quarter: 2012Q1

REPORT INFORMATION
  Report Type: 
  Country: None (occurrence: None)
  Receive Date: 20120109
  Receipt Date: 20120103
  Transmission Date: 20120608
  Serious: Yes (Life-Threatening, Hospitalization, Disabling, Other)
  Sender: FDA-Public Use
  Company Number: US-BAYER-2011-057076

PATIENT
  Age: 19 Year
  Sex: Female
  Weight: 76.644 kg

DRUGS (8)
  1. ACETAMINOPHEN [Concomitant]
  2. YAZ [Suspect]
     Indication: ORAL CONTRACEPTION
     Dosage: UNK
     Route: 048
     Dates: start: 20100501, end: 20100701
  3. DROSPIRENONE AND ETHINYL ESTRADIOL [Suspect]
     Indication: ORAL CONTRACEPTION
     Dosage: UNK
     Route: 048
     Dates: start: 20070101, end: 20100401
  4. DROSPIRENONE AND ETHINYL ESTRADIOL [Suspect]
     Indication: ACNE
     Dosage: UNK
     Dates: start: 20100801, end: 20100901
  5. YASMIN [Suspect]
     Indication: ORAL CONTRACEPTION
     Dosage: UNK
     Route: 048
     Dates: start: 20070101, end: 20100401
  6. YASMIN [Suspect]
     Indication: ACNE
     Dosage: UNK
     Dates: start: 20100801, end: 20100901
  7. AMPHETAMINE SULFATE [Concomitant]
     Dosage: UNK UNK, QD
     Route: 048
  8. YAZ [Suspect]
     Indication: ACNE

REACTIONS (14)
  - TRANSVERSE SINUS THROMBOSIS [None]
  - PAIN [None]
  - DURAL FISTULA [None]
  - ANHEDONIA [None]
  - INTRACRANIAL PRESSURE INCREASED [None]
  - EMOTIONAL DISTRESS [None]
  - PAPILLOEDEMA [None]
  - ANXIETY [None]
  - GENERAL PHYSICAL HEALTH DETERIORATION [None]
  - VISUAL IMPAIRMENT [None]
  - FEAR OF DEATH [None]
  - CEREBRAL DISORDER [None]
  - BENIGN INTRACRANIAL HYPERTENSION [None]
  - CONVULSION [None]
